FAERS Safety Report 4361246-4 (Version None)
Quarter: 2004Q2

REPORT INFORMATION
  Report Type: 
  Country: None (occurrence: None)
  Receive Date: 20040517
  Receipt Date: 20040504
  Transmission Date: 20050107
  Serious: No
  Sender: FDA-Public Use
  Company Number: 04P-167-0259614-00

PATIENT
  Age: 7 Year
  Sex: Male

DRUGS (4)
  1. VALPROATE SODIUM [Suspect]
     Indication: EPILEPSY
     Dosage: 400 MG, 2 IN 1 D, ORAL
     Route: 048
     Dates: start: 19960528
  2. VIGABATRIN [Concomitant]
  3. CLONAZEPAM [Concomitant]
  4. PREDNISOLONE [Concomitant]

REACTIONS (3)
  - DROOLING [None]
  - GINGIVAL HYPERTROPHY [None]
  - TOOTH DISORDER [None]
